FAERS Safety Report 8090743-3 (Version None)
Quarter: 2012Q1

REPORT INFORMATION
  Report Type: 
  Country: None (occurrence: None)
  Receive Date: 20120124
  Receipt Date: 20120110
  Transmission Date: 20120608
  Serious: Yes (Hospitalization)
  Sender: FDA-Public Use
  Company Number: 2012SP002819

PATIENT
  Age: 77 Year
  Sex: Female

DRUGS (9)
  1. VICTRELIS [Suspect]
     Indication: HEPATITIS C
     Dosage: 800 MG; TID; PO
     Route: 048
     Dates: start: 20111226, end: 20120105
  2. MODURETIC 5-50 [Concomitant]
  3. ALPRAZOLAM [Concomitant]
  4. ALDACTONE [Concomitant]
  5. PEG-INTRON [Suspect]
     Indication: PRODUCT USED FOR UNKNOWN INDICATION
     Dosage: 120 MCG; QW
     Dates: start: 20111226
  6. REBETOL [Suspect]
     Indication: HEPATITIS C
     Dates: start: 20111226
  7. NOVORAPID [Concomitant]
  8. MAGNESIUM [Concomitant]
  9. LANTUS [Concomitant]

REACTIONS (5)
  - VOMITING [None]
  - DECREASED APPETITE [None]
  - FEELING ABNORMAL [None]
  - MUSCULAR WEAKNESS [None]
  - NEUTROPENIA [None]
